FAERS Safety Report 4851735-8 (Version None)
Quarter: 2005Q4

REPORT INFORMATION
  Report Type: 
  Country: None (occurrence: None)
  Receive Date: 20051209
  Receipt Date: 20051209
  Transmission Date: 20060501
  Serious: Yes (Other)
  Sender: FDA-Public Use
  Company Number: None

PATIENT
  Age: 42 Year
  Sex: Male
  Weight: 59.8748 kg

DRUGS (2)
  1. SUCRALFATE [Suspect]
     Indication: GASTROOESOPHAGEAL REFLUX DISEASE
     Dosage: 2 TEASPOONS 4X DAILY  AT LEAST 12 MONTHS/MORE
  2. SUCRALFATE [Suspect]
     Indication: ULCER
     Dosage: 2 TEASPOONS 4X DAILY  AT LEAST 12 MONTHS/MORE

REACTIONS (5)
  - BACK PAIN [None]
  - BEZOAR [None]
  - GASTROINTESTINAL DISORDER [None]
  - HEADACHE [None]
  - STOMACH DISCOMFORT [None]
